FAERS Safety Report 6726981-9 (Version None)
Quarter: 2010Q2

REPORT INFORMATION
  Report Type: 
  Country: None (occurrence: None)
  Receive Date: 20100517
  Receipt Date: 20100512
  Transmission Date: 20101027
  Serious: No
  Sender: FDA-Public Use
  Company Number: US-BIOGENIDEC-2010BI015673

PATIENT
  Age: 50 Year
  Sex: Male

DRUGS (3)
  1. AVONEX [Suspect]
     Indication: MULTIPLE SCLEROSIS
     Route: 030
     Dates: start: 20070101
  2. HYDROCODONE [Concomitant]
     Indication: BACK PAIN
     Route: 048
     Dates: start: 20070101
  3. FENTANYL-75 [Concomitant]
     Indication: BACK PAIN
     Dates: start: 20100401

REACTIONS (5)
  - ABASIA [None]
  - ANXIETY [None]
  - ASTHENIA [None]
  - DEPRESSION [None]
  - INFLUENZA LIKE ILLNESS [None]
